FAERS Safety Report 16420688 (Version 1)
Quarter: 2019Q3

REPORT INFORMATION
  Report Type: Spontaneous
  Country: GB (occurrence: GB)
  Receive Date: 20190611
  Receipt Date: 20190611
  Transmission Date: 20191004
  Serious: Yes (Other)
  Sender: FDA-Public Use
  Company Number: None

PATIENT
  Age: 30 Year
  Sex: Female
  Weight: 76.5 kg

DRUGS (1)
  1. CERAZETTE (DESOGESTREL) [Suspect]
     Active Substance: DESOGESTREL
     Indication: CONTRACEPTION
     Dates: start: 20190605

REACTIONS (2)
  - Maternal exposure during breast feeding [None]
  - Suppressed lactation [None]

NARRATIVE: CASE EVENT DATE: 20190606
